FAERS Safety Report 20031725 (Version 8)
Quarter: 2024Q3

REPORT INFORMATION
  Report Type: Report from Study
  Country: CH (occurrence: CH)
  Receive Date: 20211103
  Receipt Date: 20240708
  Transmission Date: 20241017
  Serious: Yes (Hospitalization, Disabling, Other)
  Sender: ABBVIE
  Company Number: CH-ABBVIE-20K-151-3587954-00

PATIENT
  Age: 75 Year
  Sex: Male
  Weight: 115 kg

DRUGS (23)
  1. SKYRIZI [Suspect]
     Active Substance: RISANKIZUMAB-RZAA
     Indication: Psoriasis
     Route: 058
     Dates: start: 20200212, end: 20200312
  2. SKYRIZI [Suspect]
     Active Substance: RISANKIZUMAB-RZAA
     Route: 058
     Dates: start: 20200312
  3. RAMIPRIL [Concomitant]
     Active Substance: RAMIPRIL
     Indication: Coronary artery disease
     Dates: start: 20210727, end: 202109
  4. PANTOZOL [Concomitant]
     Active Substance: PANTOPRAZOLE SODIUM
     Indication: Gastrooesophageal reflux disease
     Dosage: FREQUENCY TEXT: ONCE, MORNING
     Dates: start: 20210727
  5. Exufiber ag+ [Concomitant]
     Indication: Product used for unknown indication
     Dosage: GEL GAUZE?FREQUENCY TEXT: NOON
     Route: 061
  6. TORSEMIDE [Concomitant]
     Active Substance: TORSEMIDE
     Indication: Coronary artery disease
     Dates: start: 20210727
  7. ASPIRIN [Concomitant]
     Active Substance: ASPIRIN
     Indication: Coronary artery disease
     Dosage: FREQUENCY TEXT: ONCE IN THE MORNING
     Dates: start: 20190101, end: 20210828
  8. ALLOPURINOL [Concomitant]
     Active Substance: ALLOPURINOL
     Indication: Gout
     Dosage: 100 MILLIGRAM,?FREQUENCY TEXT: 1X MORNING
     Dates: start: 202109, end: 20221103
  9. CANDESARTAN CILEXETIL [Concomitant]
     Active Substance: CANDESARTAN CILEXETIL
     Indication: Coronary artery disease
     Route: 048
     Dates: start: 202109
  10. BETADINE [Concomitant]
     Active Substance: POVIDONE-IODINE
     Indication: Product used for unknown indication
     Dosage: FREQUENCY TEXT: ONCE, NOON
  11. ATORVASTATIN [Concomitant]
     Active Substance: ATORVASTATIN
     Indication: Coronary artery disease
     Dosage: FREQUENCY TEXT: EVENING
     Dates: start: 202109
  12. GAZIN [Concomitant]
     Indication: Product used for unknown indication
     Dosage: FREQUENCY TEXT: NOON
     Route: 061
  13. PIPERACILLIN AND TAZOBACTAM [Concomitant]
     Active Substance: PIPERACILLIN SODIUM\TAZOBACTAM SODIUM
     Indication: Product used for unknown indication
     Dosage: FREQUENCY TEXT: 8 HOURS
     Dates: start: 20210731, end: 20210804
  14. AUGMENTIN [Concomitant]
     Active Substance: AMOXICILLIN\CLAVULANATE POTASSIUM
     Indication: Product used for unknown indication
     Route: 048
     Dates: start: 20210705, end: 20210807
  15. NITROGLYCERIN [Concomitant]
     Active Substance: NITROGLYCERIN
     Indication: Product used for unknown indication
     Dates: start: 20210707, end: 20210728
  16. ROSUVASTATIN [Concomitant]
     Active Substance: ROSUVASTATIN
     Indication: Coronary artery disease
     Dates: start: 20090101, end: 202109
  17. ELIQUIS [Concomitant]
     Active Substance: APIXABAN
     Indication: Coronary artery disease
     Dosage: FREQUENCY TEXT: 1X MORNING, 1X EVENING
     Route: 048
     Dates: start: 20210727
  18. CANDESARTAN CILEXETIL [Concomitant]
     Active Substance: CANDESARTAN CILEXETIL
     Indication: Product used for unknown indication
  19. BISOPROLOL FUMARATE [Concomitant]
     Active Substance: BISOPROLOL FUMARATE
     Indication: Coronary artery disease
     Dates: start: 20210727, end: 202109
  20. MOMETASONI-17 FUROAS [Concomitant]
     Indication: Psoriasis
     Dosage: FREQUENCY TEXT: TWICE A WEEK
     Route: 061
     Dates: start: 20221114
  21. ALLOPURINOL [Concomitant]
     Active Substance: ALLOPURINOL
     Indication: Gout
     Dates: start: 20110101
  22. CLOBETASOL [Concomitant]
     Active Substance: CLOBETASOL
     Indication: Psoriasis
     Dosage: TUBE
     Dates: start: 20200705, end: 20200905
  23. CLOPIDOGREL [Concomitant]
     Active Substance: CLOPIDOGREL BISULFATE
     Indication: Coronary artery disease
     Dates: start: 20210727, end: 20220728

REACTIONS (35)
  - Hypotension [Unknown]
  - Renal tubular necrosis [Unknown]
  - Left ventricular dysfunction [Not Recovered/Not Resolved]
  - Lung infiltration [Unknown]
  - Pneumonia [Unknown]
  - Chronic obstructive pulmonary disease [Recovered/Resolved with Sequelae]
  - Pneumonia aspiration [Unknown]
  - Myocardial infarction [Recovered/Resolved]
  - Myocardial infarction [Recovered/Resolved]
  - Haemorrhage [Unknown]
  - Nystagmus [Recovered/Resolved with Sequelae]
  - Deafness [Recovering/Resolving]
  - Pulmonary oedema [Unknown]
  - Urinary tract infection [Unknown]
  - Vestibular disorder [Unknown]
  - Haematoma [Unknown]
  - Fall [Recovered/Resolved]
  - Leukocyturia [Unknown]
  - Weight decreased [Unknown]
  - Haemoglobin decreased [Unknown]
  - Anaemia [Unknown]
  - Iron deficiency [Unknown]
  - Renal cyst [Unknown]
  - Bacteriuria [Unknown]
  - Vertigo [Unknown]
  - Glucose tolerance impaired [Unknown]
  - Vibration test abnormal [Unknown]
  - Hyperuricaemia [Unknown]
  - Nail discolouration [Unknown]
  - Seborrhoea [Unknown]
  - Rhinitis [Recovered/Resolved]
  - Rhinitis [Recovered/Resolved]
  - Vitamin D deficiency [Not Recovered/Not Resolved]
  - Pain in extremity [Recovered/Resolved]
  - Folate deficiency [Not Recovered/Not Resolved]

NARRATIVE: CASE EVENT DATE: 20200312
